FAERS Safety Report 5563873-5 (Version None)
Quarter: 2007Q4

REPORT INFORMATION
  Report Type: 
  Country: None (occurrence: None)
  Receive Date: 20071217
  Receipt Date: 20071023
  Transmission Date: 20080405
  Serious: No
  Sender: FDA-Public Use
  Company Number: US-ASTRAZENECA-2007UW22873

PATIENT
  Age: 80 Year
  Sex: Female
  Weight: 66.7 kg

DRUGS (4)
  1. CRESTOR [Suspect]
     Indication: BLOOD CHOLESTEROL INCREASED
     Route: 048
     Dates: start: 20070401
  2. ZIAC [Concomitant]
  3. MOBIC [Concomitant]
  4. FOSAMAX [Concomitant]

REACTIONS (2)
  - HAIR TEXTURE ABNORMAL [None]
  - NEURALGIA [None]
